FAERS Safety Report 23820542 (Version 3)
Quarter: 2024Q3

REPORT INFORMATION
  Report Type: Spontaneous
  Country: US (occurrence: US)
  Receive Date: 20240506
  Receipt Date: 20240802
  Transmission Date: 20241017
  Serious: No
  Sender: SANOFI AVENTIS
  Company Number: US-SA-SAC20240426001258

PATIENT
  Age: 30 Year
  Sex: Male
  Weight: 85.72 kg

DRUGS (6)
  1. DUPIXENT [Suspect]
     Active Substance: DUPILUMAB
     Indication: Dermatitis atopic
     Dosage: 300 MG, QOW
     Route: 058
     Dates: start: 20240402
  2. VITAMIN C [Concomitant]
     Active Substance: ASCORBIC ACID
  3. VITAMIN D2 [Concomitant]
     Active Substance: ERGOCALCIFEROL
  4. TACROLIMUS [Concomitant]
     Active Substance: TACROLIMUS
  5. EUCERIN ORIGINAL HEALING [Concomitant]
  6. ZINC [Concomitant]
     Active Substance: ZINC

REACTIONS (4)
  - Diarrhoea [Unknown]
  - Injection site pain [Recovered/Resolved]
  - Rash pruritic [Unknown]
  - Therapeutic response shortened [Unknown]

NARRATIVE: CASE EVENT DATE: 20240101
